FAERS Safety Report 4726690-1 (Version None)
Quarter: 2005Q3

REPORT INFORMATION
  Report Type: 
  Country: None (occurrence: None)
  Receive Date: 20050725
  Receipt Date: 20050321
  Transmission Date: 20060218
  Serious: No
  Sender: FDA-Public Use
  Company Number: USA030845370

PATIENT
  Age: 11 Year
  Sex: Male
  Weight: 55 kg

DRUGS (1)
  1. STRATTERA [Suspect]
     Indication: ATTENTION DEFICIT/HYPERACTIVITY DISORDER
     Dosage: 80 MG DAY
     Dates: start: 20030101

REACTIONS (6)
  - BLOOD PRESSURE INCREASED [None]
  - DISTURBANCE IN ATTENTION [None]
  - ERYTHEMA [None]
  - FATIGUE [None]
  - STOMACH DISCOMFORT [None]
  - TACHYCARDIA [None]
